FAERS Safety Report 5482458-2 (Version None)
Quarter: 2007Q4

REPORT INFORMATION
  Report Type: 
  Country: None (occurrence: None)
  Receive Date: 20071011
  Receipt Date: 20070926
  Transmission Date: 20080405
  Serious: Yes (Hospitalization)
  Sender: FDA-Public Use
  Company Number: US-ELI_LILLY_AND_COMPANY-US200709001978

PATIENT
  Sex: Female

DRUGS (9)
  1. FORTEO [Suspect]
     Dates: start: 20060301
  2. CALCIUM [Concomitant]
  3. VITAMINS [Concomitant]
  4. METOPROLOL TARTRATE [Concomitant]
     Indication: HYPERTENSION
  5. NEXIUM [Concomitant]
     Indication: REFLUX OESOPHAGITIS
  6. TRIAMTERENE AND HYDROCHLOROTHIAZIDE [Concomitant]
     Indication: BLOOD PRESSURE
  7. SINGULAIR [Concomitant]
     Indication: HYPERSENSITIVITY
  8. ZETIA [Concomitant]
     Indication: BLOOD CHOLESTEROL INCREASED
  9. ADVAIR DISKUS 100/50 [Concomitant]
     Indication: CHRONIC OBSTRUCTIVE PULMONARY DISEASE

REACTIONS (2)
  - BACK PAIN [None]
  - EXOSTOSIS [None]
